FAERS Safety Report 9235755 (Version 1)
Quarter: 2013Q2

REPORT INFORMATION
  Report Type: Spontaneous
  Country: US (occurrence: US)
  Receive Date: 20130417
  Receipt Date: 20130417
  Transmission Date: 20140414
  Serious: Yes (Other)
  Sender: FDA-Public Use
  Company Number: US-JNJFOC-20130403128

PATIENT
  Age: 23 Year
  Sex: Male
  Weight: 83.92 kg

DRUGS (3)
  1. INVEGA SUSTENNA [Suspect]
     Indication: BIPOLAR DISORDER
     Route: 030
     Dates: start: 201205, end: 201303
  2. INVEGA SUSTENNA [Suspect]
     Indication: BIPOLAR DISORDER
     Route: 030
     Dates: start: 201010, end: 201204
  3. CARBON MONOXIDE [Suspect]
     Indication: SUICIDE ATTEMPT
     Route: 065
     Dates: start: 201303

REACTIONS (5)
  - Suicide attempt [Recovered/Resolved]
  - Depression [Recovering/Resolving]
  - Off label use [Unknown]
  - Injection site pain [Recovered/Resolved]
  - Treatment noncompliance [Unknown]
